FAERS Safety Report 5525728-1 (Version None)
Quarter: 2007Q4

REPORT INFORMATION
  Report Type: 
  Country: None (occurrence: None)
  Receive Date: 20071126
  Receipt Date: 20071115
  Transmission Date: 20080405
  Serious: Yes (Hospitalization)
  Sender: FDA-Public Use
  Company Number: GB-ROCHE-532037

PATIENT
  Age: 57 Year
  Sex: Female
  Weight: 87 kg

DRUGS (3)
  1. ORLISTAT [Suspect]
     Indication: OBESITY
     Route: 048
     Dates: start: 20070627, end: 20071001
  2. DIHYDROCODEINE [Concomitant]
     Indication: BACK PAIN
     Route: 048
  3. PARACETAMOL [Concomitant]
     Indication: BACK PAIN
     Route: 048

REACTIONS (1)
  - HAEMORRHOIDS [None]
